FAERS Safety Report 10096291 (Version 3)
Quarter: 2015Q3

REPORT INFORMATION
  Report Type: Spontaneous
  Country: US (occurrence: US)
  Receive Date: 20140422
  Receipt Date: 20150812
  Transmission Date: 20151125
  Serious: No
  Sender: FDA-Public Use
  Company Number: US-GILEAD-2012-0059854

PATIENT
  Age: 70 Year
  Sex: Female

DRUGS (4)
  1. LETAIRIS [Suspect]
     Active Substance: AMBRISENTAN
     Indication: DECREASED APPETITE
  2. NORVASC [Suspect]
     Active Substance: AMLODIPINE BESYLATE
  3. LETAIRIS [Suspect]
     Active Substance: AMBRISENTAN
     Indication: PULMONARY ARTERIAL HYPERTENSION
     Dosage: 10 MG, QD
     Route: 048
     Dates: start: 20120809, end: 20120907
  4. LETAIRIS [Suspect]
     Active Substance: AMBRISENTAN
     Indication: PULMONARY ARTERIAL HYPERTENSION
     Dosage: 5 UNK, UNK
     Route: 048

REACTIONS (7)
  - Ear infection [Recovered/Resolved]
  - Fluid retention [Not Recovered/Not Resolved]
  - Vertigo [Recovered/Resolved]
  - Abdominal discomfort [Recovered/Resolved]
  - Weight increased [Unknown]
  - Dizziness [Not Recovered/Not Resolved]
  - Sinusitis [Recovered/Resolved]

NARRATIVE: CASE EVENT DATE: 20120809
